FAERS Safety Report 13754694 (Version 3)
Quarter: 2017Q4

REPORT INFORMATION
  Report Type: Report from Study
  Country: CA (occurrence: CA)
  Receive Date: 20170714
  Receipt Date: 20171110
  Transmission Date: 20180320
  Serious: Yes (Other)
  Sender: FDA-Public Use
  Company Number: CA-BRISTOL-MYERS SQUIBB COMPANY-BMS-2017-061501

PATIENT
  Age: 78 Year
  Sex: Female

DRUGS (2)
  1. ABATACEPT [Suspect]
     Active Substance: ABATACEPT
     Indication: POLYARTHRITIS
     Dosage: 750 MG, Q4WK
     Route: 042
     Dates: start: 20080505
  2. ABATACEPT [Suspect]
     Active Substance: ABATACEPT
     Indication: RHEUMATOID ARTHRITIS
     Route: 065

REACTIONS (4)
  - Skin neoplasm excision [Unknown]
  - Movement disorder [Recovering/Resolving]
  - Pain in extremity [Recovering/Resolving]
  - Precancerous skin lesion [Recovering/Resolving]

NARRATIVE: CASE EVENT DATE: 20170703
